FAERS Safety Report 9963670 (Version 1)
Quarter: 2014Q1

REPORT INFORMATION
  Report Type: Report from Study
  Country: US (occurrence: US)
  Receive Date: 20140305
  Receipt Date: 20140305
  Transmission Date: 20141002
  Serious: No
  Sender: FDA-Public Use
  Company Number: US-ABBVIE-13P-163-1117249-00

PATIENT
  Age: 53 Year
  Sex: Female

DRUGS (3)
  1. HUMIRA [Suspect]
     Indication: PSORIASIS
     Dates: start: 20130517
  2. CLOBEX [Concomitant]
     Indication: PSORIASIS
     Dosage: STEROID SPRAY
  3. VECTICAL [Concomitant]
     Indication: PSORIASIS
     Route: 061

REACTIONS (1)
  - Psoriasis [Not Recovered/Not Resolved]
